FAERS Safety Report 8880666 (Version 3)
Quarter: 2013Q2

REPORT INFORMATION
  Report Type: Spontaneous
  Country: US (occurrence: US)
  Receive Date: 20121101
  Receipt Date: 20130417
  Transmission Date: 20140414
  Serious: No
  Sender: FDA-Public Use
  Company Number: US-B.I. PHARMACEUTICALS,INC./RIDGEFIELD-2012-BP-26941BP

PATIENT
  Age: 87 Year
  Sex: Female

DRUGS (8)
  1. ZANTAC 150 (RANITIDINE HYDROCHLORIDE) [Suspect]
     Indication: DYSPEPSIA
     Dosage: 150 MG
     Route: 048
     Dates: start: 20121026
  2. DILTIAZEM [Concomitant]
     Indication: HYPERTENSION
  3. BENICAR [Concomitant]
     Indication: HYPERTENSION
  4. VITAMIN D [Concomitant]
  5. VITAMIN B12 [Concomitant]
  6. CENTRUM SILVER [Concomitant]
  7. ATENOLOL [Concomitant]
     Indication: HYPERTENSION
  8. XANAX [Concomitant]
     Indication: ANXIETY

REACTIONS (4)
  - Drug ineffective [Not Recovered/Not Resolved]
  - Abdominal discomfort [Not Recovered/Not Resolved]
  - Intentional drug misuse [Unknown]
  - Dyspepsia [Not Recovered/Not Resolved]
